FAERS Safety Report 5710166-9 (Version None)
Quarter: 2008Q2

REPORT INFORMATION
  Report Type: 
  Country: None (occurrence: None)
  Receive Date: 20080418
  Receipt Date: 20071205
  Transmission Date: 20081010
  Serious: No
  Sender: FDA-Public Use
  Company Number: US-ASTRAZENECA-2007UW27661

PATIENT
  Age: 57 Year
  Sex: Female
  Weight: 60.8 kg

DRUGS (3)
  1. TOPROL-XL [Suspect]
     Indication: HEART RATE
     Route: 048
  2. AVAPRO [Concomitant]
  3. LIPITOR [Concomitant]

REACTIONS (1)
  - BLOOD TRIGLYCERIDES INCREASED [None]
